FAERS Safety Report 16797462 (Version 1)
Quarter: 2019Q3

REPORT INFORMATION
  Report Type: Spontaneous
  Country: ES (occurrence: ES)
  Receive Date: 20190912
  Receipt Date: 20190912
  Transmission Date: 20191005
  Serious: Yes (Other)
  Sender: FDA-Public Use
  Company Number: ES-TEVA-2019-ES-1105442

PATIENT
  Age: 8 Month
  Sex: Male
  Weight: 9.85 kg

DRUGS (2)
  1. MINOXIDIL (782A) [Suspect]
     Active Substance: MINOXIDIL
     Dates: start: 20190301, end: 20190510
  2. OP2455 - OMEPRAZOL FOMULA MAGISTRAL [Suspect]
     Active Substance: OMEPRAZOLE
     Indication: GASTROOESOPHAGEAL REFLUX DISEASE
     Dosage: 1.2-1.5 ML/12 H
     Route: 048
     Dates: start: 20190301, end: 20190510

REACTIONS (2)
  - Hypertrichosis [Not Recovered/Not Resolved]
  - Product formulation issue [Not Recovered/Not Resolved]

NARRATIVE: CASE EVENT DATE: 20190315
